FAERS Safety Report 7060821-6 (Version None)
Quarter: 2010Q4

REPORT INFORMATION
  Report Type: 
  Country: None (occurrence: None)
  Receive Date: 20101025
  Receipt Date: 20100629
  Transmission Date: 20110411
  Serious: No
  Sender: FDA-Public Use
  Company Number: US-BAUSCH-2010BL003540

PATIENT
  Age: 63 Year
  Sex: Female

DRUGS (9)
  1. DICLOFENAC SODIUM [Suspect]
     Route: 047
     Dates: start: 20100401, end: 20100601
  2. WELLBUTRIN [Concomitant]
  3. ROBAXIN [Concomitant]
  4. HYDROCHLOROTHIAZIDE [Concomitant]
     Indication: HYPERTENSION
  5. POTASSIUM CHLORIDE [Concomitant]
     Indication: HYPERTENSION
  6. ARMOUR THYROID [Concomitant]
     Indication: HYPOTHYROIDISM
  7. NORVASC [Concomitant]
     Indication: HYPERTENSION
  8. AVALIDE [Concomitant]
     Indication: DIABETES MELLITUS
  9. METFORMIN [Concomitant]
     Indication: DIABETES MELLITUS

REACTIONS (1)
  - EYE PAIN [None]
